FAERS Safety Report 7703445-7 (Version None)
Quarter: 2011Q3

REPORT INFORMATION
  Report Type: 
  Country: None (occurrence: None)
  Receive Date: 20110823
  Receipt Date: 20110823
  Transmission Date: 20111222
  Serious: Yes (Other)
  Sender: FDA-Public Use
  Company Number: None

PATIENT
  Age: 77 Year
  Sex: Female
  Weight: 92.986 kg

DRUGS (2)
  1. PRADAXA [Suspect]
     Indication: CARDIAC MURMUR
     Dosage: 1 CAPSULE
     Route: 048
     Dates: start: 20110315, end: 20110728
  2. PRADAXA [Suspect]
     Indication: ATRIAL FIBRILLATION
     Dosage: 1 CAPSULE
     Route: 048
     Dates: start: 20110315, end: 20110728

REACTIONS (6)
  - ASTHENIA [None]
  - IMMUNODEFICIENCY [None]
  - SUDDEN DEATH [None]
  - SKULL FRACTURE [None]
  - PLASMA VISCOSITY DECREASED [None]
  - FALL [None]
